FAERS Safety Report 11347208 (Version 1)
Quarter: 2015Q3

REPORT INFORMATION
  Report Type: Spontaneous
  Country: US (occurrence: US)
  Receive Date: 20150803
  Receipt Date: 20150803
  Transmission Date: 20151125
  Serious: No
  Sender: FDA-Public Use
  Company Number: US-ELI_LILLY_AND_COMPANY-US201104002202

PATIENT
  Age: 27 Year
  Sex: Male

DRUGS (6)
  1. ZYPREXA [Suspect]
     Active Substance: OLANZAPINE
     Dosage: 5 MG, QD
  2. ZYPREXA [Suspect]
     Active Substance: OLANZAPINE
     Dosage: 10 MG, QD
  3. LITHIUM. [Concomitant]
     Active Substance: LITHIUM
  4. ZYPREXA [Suspect]
     Active Substance: OLANZAPINE
     Dosage: 20 MG, QD
  5. ZYPREXA [Suspect]
     Active Substance: OLANZAPINE
     Dosage: 5 MG, QD
  6. ZYPREXA [Suspect]
     Active Substance: OLANZAPINE
     Indication: SCHIZOAFFECTIVE DISORDER
     Dosage: 20 MG, QD

REACTIONS (10)
  - Urine analysis abnormal [Unknown]
  - Disturbance in attention [Unknown]
  - Hearing impaired [Unknown]
  - Speech disorder [Unknown]
  - Dysphemia [Unknown]
  - Abnormal behaviour [Unknown]
  - Mental impairment [Unknown]
  - Overdose [Unknown]
  - Eczema [Unknown]
  - Off label use [Unknown]
